FAERS Safety Report 10025426 (Version 3)
Quarter: 2014Q2

REPORT INFORMATION
  Report Type: Report from Study
  Country: MX (occurrence: MX)
  Receive Date: 20140320
  Receipt Date: 20140505
  Transmission Date: 20141212
  Serious: Yes (Disabling, Other)
  Sender: FDA-Public Use
  Company Number: MX-ROCHE-1367140

PATIENT
  Age: 57 Year
  Sex: Male

DRUGS (3)
  1. LUCENTIS [Suspect]
     Indication: EYE DISORDER
     Dosage: DOSE: 0.5MG/0.05ML
     Route: 050
     Dates: start: 20140226
  2. GLIBENCLAMIDE/METFORMIN [Concomitant]
     Indication: DIABETES MELLITUS
     Dosage: 5 MG/850 MG
     Route: 065
  3. PRAZOSIN [Concomitant]
     Indication: PROSTATIC DISORDER

REACTIONS (9)
  - Visual acuity reduced [Not Recovered/Not Resolved]
  - Prostatic disorder [Not Recovered/Not Resolved]
  - Vision blurred [Recovering/Resolving]
  - Photophobia [Recovering/Resolving]
  - Visual impairment [Recovered/Resolved]
  - Vision blurred [Unknown]
  - Blood calcium increased [Unknown]
  - Peripheral swelling [Unknown]
  - Eye pain [Unknown]
